FAERS Safety Report 6153276-7 (Version None)
Quarter: 2009Q2

REPORT INFORMATION
  Report Type: 
  Country: None (occurrence: None)
  Receive Date: 20090409
  Receipt Date: 20090327
  Transmission Date: 20091009
  Serious: Yes (Hospitalization, Other)
  Sender: FDA-Public Use
  Company Number: 2009000937

PATIENT
  Age: 73 Year
  Sex: Male

DRUGS (1)
  1. TARCEVA [Suspect]
     Indication: NON-SMALL CELL LUNG CANCER
     Dosage: (150 MG,QD)
     Dates: start: 20090223

REACTIONS (4)
  - CHEST DISCOMFORT [None]
  - CONDITION AGGRAVATED [None]
  - NODULE [None]
  - PLEURAL EFFUSION [None]
